FAERS Safety Report 13205951 (Version 1)
Quarter: 2017Q1

REPORT INFORMATION
  Report Type: Spontaneous
  Country: US (occurrence: US)
  Receive Date: 20170209
  Receipt Date: 20170209
  Transmission Date: 20170428
  Serious: Yes (Hospitalization, Disabling, Other)
  Sender: FDA-Public Use
  Company Number: US-SAOL THERAPEUTICS-2016SAO01283

PATIENT
  Age: 72 Year
  Sex: Female

DRUGS (2)
  1. LIORESAL [Suspect]
     Active Substance: BACLOFEN
     Indication: MUSCLE SPASTICITY
     Dosage: 2038.9 ?G, \DAY
     Route: 037
     Dates: start: 20161027
  2. BACLOFEN. [Suspect]
     Active Substance: BACLOFEN
     Route: 048

REACTIONS (10)
  - Asthenia [Unknown]
  - Wound [Not Recovered/Not Resolved]
  - Device alarm issue [Unknown]
  - Hypoacusis [Not Recovered/Not Resolved]
  - Weight decreased [Unknown]
  - Therapy non-responder [Unknown]
  - Decubitus ulcer [Not Recovered/Not Resolved]
  - Muscle spasticity [Unknown]
  - Device battery issue [Not Recovered/Not Resolved]
  - Pain [Unknown]

NARRATIVE: CASE EVENT DATE: 20160908
